FAERS Safety Report 24903874 (Version 1)
Quarter: 2025Q1

REPORT INFORMATION
  Report Type: Spontaneous
  Country: BE (occurrence: BE)
  Receive Date: 20250130
  Receipt Date: 20250130
  Transmission Date: 20250408
  Serious: Yes (Other)
  Sender: MACLEODS
  Company Number: BE-MLMSERVICE-20250113-PI348483-00322-1

PATIENT

DRUGS (1)
  1. TRAMADOL HYDROCHLORIDE [Suspect]
     Active Substance: TRAMADOL HYDROCHLORIDE
     Indication: Back pain
     Route: 065

REACTIONS (5)
  - Haematemesis [Unknown]
  - Oesophagitis [Recovering/Resolving]
  - Chest pain [Unknown]
  - Dysphagia [Unknown]
  - Weight decreased [Unknown]
